FAERS Safety Report 20215853 (Version 2)
Quarter: 2022Q1

REPORT INFORMATION
  Report Type: Report from Study
  Country: IT (occurrence: IT)
  Receive Date: 20211222
  Receipt Date: 20220111
  Transmission Date: 20220423
  Serious: Yes (Life-Threatening)
  Sender: FDA-Public Use
  Company Number: None

PATIENT
  Age: 6 Year
  Sex: Male
  Weight: 29 kg

DRUGS (3)
  1. TRISENOX [Suspect]
     Active Substance: ARSENIC TRIOXIDE
     Indication: Acute promyelocytic leukaemia
     Dosage: 0.15 MG, POWDER AND SOLVENT FOR CONCENTRATE FOR SOLUTION FOR INFUSION, OFF LABEL
     Route: 042
     Dates: start: 20210904
  2. VESANOID [Suspect]
     Active Substance: TRETINOIN
     Indication: Acute promyelocytic leukaemia
     Dosage: 20 MG
     Route: 048
     Dates: start: 20210904
  3. PAXABEL [Concomitant]
     Indication: Constipation
     Dosage: 4 G, PAXABEL 4 G POWDER FOR ORAL SOLUTION IN SACHET
     Route: 048
     Dates: start: 20210904, end: 20211022

REACTIONS (2)
  - Hyperleukocytosis [Recovered/Resolved]
  - Differentiation syndrome [Recovered/Resolved]

NARRATIVE: CASE EVENT DATE: 20210919
